FAERS Safety Report 8471438-0 (Version None)
Quarter: 2012Q2

REPORT INFORMATION
  Report Type: 
  Country: None (occurrence: None)
  Receive Date: 20120627
  Receipt Date: 20120621
  Transmission Date: 20120825
  Serious: Yes (Death, Other)
  Sender: FDA-Public Use
  Company Number: PHHY2012BR054112

PATIENT
  Age: 79 Year
  Sex: Female

DRUGS (7)
  1. STALEVO 100 [Suspect]
     Dosage: 100 MG LEVODOPA, 25 MG CARBIDOPA AND 200 MG ENTACAPONE
     Route: 048
  2. STALEVO 100 [Suspect]
     Dosage: 4 DF (150 MG LEVODOPA, 37.5 MG CARBIDOPA AND 200 MG ENTACAPONE), DAILY
     Route: 048
  3. STALEVO 100 [Suspect]
     Dosage: 3 DF (150 MG LEVODOPA, 37.5 MG CARBIDOPA AND 200 MG ENTACAPONE), DAILY
     Route: 048
  4. STALEVO 100 [Suspect]
     Indication: MUSCLE RIGIDITY
     Dosage: 2 DF (50 MG LEVODOPA, 12.5 MG CARBIDOPA AND 200 MG ENTACAPONE), DAILY
     Route: 048
  5. LOMIR SRO [Suspect]
     Indication: BLOOD PRESSURE
     Dosage: 1 DF, DAILY
  6. STALEVO 100 [Suspect]
     Dosage: 2 DF (150 MG LEVODOPA, 37.5 MG CARBIDOPA AND 200 MG ENTACAPONE), DAILY
     Route: 048
  7. STALEVO 100 [Suspect]
     Dosage: 3 DF (150 MG LEVODOPA, 37.5 MG CARBIDOPA AND 200 MG ENTACAPONE), DAILY
     Route: 048

REACTIONS (6)
  - HYPOTENSION [None]
  - ASTHENIA [None]
  - DYSPNOEA [None]
  - RESPIRATORY DISORDER [None]
  - NAUSEA [None]
  - HEART RATE IRREGULAR [None]
